FAERS Safety Report 7709616-8 (Version None)
Quarter: 2011Q3

REPORT INFORMATION
  Report Type: 
  Country: None (occurrence: None)
  Receive Date: 20110825
  Receipt Date: 20110812
  Transmission Date: 20111222
  Serious: Yes (Other)
  Sender: FDA-Public Use
  Company Number: US-GLAXOSMITHKLINE-A0873785A

PATIENT
  Age: 63 Year
  Sex: Female
  Weight: 112.7 kg

DRUGS (5)
  1. SIMAVASTATIN [Concomitant]
  2. AVANDIA [Suspect]
     Indication: DIABETES MELLITUS
     Dosage: 4MG PER DAY
     Route: 048
     Dates: start: 20070429
  3. CELEBREX [Concomitant]
  4. GLYBURIDE [Concomitant]
  5. METFORMIN HCL [Concomitant]

REACTIONS (8)
  - HEART RATE INCREASED [None]
  - VISUAL IMPAIRMENT [None]
  - COUGH [None]
  - NAUSEA [None]
  - WEIGHT INCREASED [None]
  - ANXIETY [None]
  - HEADACHE [None]
  - SWELLING [None]
